FAERS Safety Report 5814756-4 (Version None)
Quarter: 2008Q3

REPORT INFORMATION
  Report Type: 
  Country: None (occurrence: None)
  Receive Date: 20080718
  Receipt Date: 20080710
  Transmission Date: 20090109
  Serious: Yes (Hospitalization)
  Sender: FDA-Public Use
  Company Number: PHHO2005DE19277

PATIENT
  Sex: Female
  Weight: 95 kg

DRUGS (7)
  1. HYDROCHLOROTHIAZIDE T08766+CAPS [Suspect]
     Indication: ESSENTIAL HYPERTENSION
     Dosage: 12.5/25MG
     Route: 048
     Dates: start: 20050531, end: 20051130
  2. THYRONAJOD [Concomitant]
  3. PANTOPRAZOLE SODIUM [Concomitant]
  4. SPIRIVA [Concomitant]
  5. MYDOCALM [Concomitant]
  6. UNILAIR [Concomitant]
  7. METAMIZOL [Concomitant]

REACTIONS (21)
  - AORTIC VALVE DISEASE [None]
  - AORTIC VALVE INCOMPETENCE [None]
  - ASTHENIA [None]
  - ATRIOVENTRICULAR BLOCK SECOND DEGREE [None]
  - CHOLELITHIASIS [None]
  - CIRCULATORY COLLAPSE [None]
  - HEPATIC STEATOSIS [None]
  - HEPATOMEGALY [None]
  - HYPERVENTILATION [None]
  - HYPOKALAEMIA [None]
  - LEFT VENTRICULAR HYPERTROPHY [None]
  - MITRAL VALVE INCOMPETENCE [None]
  - MYALGIA [None]
  - OEDEMA PERIPHERAL [None]
  - PAIN [None]
  - RESTLESS LEGS SYNDROME [None]
  - SOMATISATION DISORDER [None]
  - SYNCOPE [None]
  - TENSION HEADACHE [None]
  - TETANY [None]
  - TRICUSPID VALVE INCOMPETENCE [None]
